FAERS Safety Report 9458813 (Version 3)
Quarter: 2013Q3

REPORT INFORMATION
  Report Type: Spontaneous
  Country: US (occurrence: None)
  Receive Date: 20130812
  Receipt Date: 20130925
  Transmission Date: 20140515
  Serious: Yes (Hospitalization)
  Sender: FDA-Public Use
  Company Number: ACO_37759_2013

PATIENT
  Age: 50 Year
  Sex: Female
  Weight: 63 kg

DRUGS (14)
  1. AMPYRA [Suspect]
     Indication: MULTIPLE SCLEROSIS
     Route: 048
     Dates: start: 2013
  2. AMPYRA [Suspect]
     Indication: GAIT DISTURBANCE
     Route: 048
     Dates: start: 2013
  3. TECFIDERA (DIMETHYL FUMARATE) [Concomitant]
  4. LISINOPRIL (LISINOPRIL) [Concomitant]
  5. URECHOLINE (BETHABECHOL CHLORIDE) [Concomitant]
  6. METHYLPHENIDATE (METHYPHENIDATE HYDROCHLORIDE) [Concomitant]
  7. NEUROTRONIN (GABAPENTIN) [Concomitant]
  8. RAPAFLO (SILODOSIN) [Concomitant]
  9. CELEXA (CITALOPRAM HYDROBROMIDE) [Concomitant]
  10. LEVOTHYROXINE SODIUM (LEVOTHYROXINE SODIUM) [Concomitant]
  11. B12 (CYANOCOBALMIN) [Concomitant]
  12. RITALIN  (METHYLPHENIDATE HYDROCHLORIDE) [Concomitant]
  13. CALCIUM + D (CALCIUM CARBONATE, COLECALCIFEROL) [Concomitant]
  14. VITAMIN D2 (ERGOCALCIFEROL) [Concomitant]

REACTIONS (2)
  - Pyelonephritis [None]
  - Urinary tract infection [None]
